FAERS Safety Report 7700492-6 (Version None)
Quarter: 2011Q3

REPORT INFORMATION
  Report Type: 
  Country: None (occurrence: None)
  Receive Date: 20110817
  Receipt Date: 20110809
  Transmission Date: 20111222
  Serious: Yes (Hospitalization)
  Sender: FDA-Public Use
  Company Number: JPI-P-016486

PATIENT
  Age: 41 Year
  Sex: Male
  Weight: 86.1834 kg

DRUGS (3)
  1. XYREM [Suspect]
     Indication: NARCOLEPSY
     Dosage: 4.5 GM (2.25 2 IN 1 D), ORAL
     Route: 048
     Dates: start: 20081101
  2. METHYLPHENIDATE [Concomitant]
  3. TRAMADOL HCL [Concomitant]

REACTIONS (1)
  - APPENDICITIS [None]
